FAERS Safety Report 6060069-8 (Version None)
Quarter: 2009Q1

REPORT INFORMATION
  Report Type: 
  Country: None (occurrence: None)
  Receive Date: 20090130
  Receipt Date: 20090121
  Transmission Date: 20090719
  Serious: Yes (Other)
  Sender: FDA-Public Use
  Company Number: CA-ELI_LILLY_AND_COMPANY-CA200811003742

PATIENT
  Sex: Female
  Weight: 112.93 kg

DRUGS (4)
  1. DULOXETINE HYDROCHLORIDE [Suspect]
     Indication: MAJOR DEPRESSION
     Dosage: 60 MG, 2/D
     Route: 048
     Dates: start: 20081001
  2. ORTHO TRI-CYCLEN [Concomitant]
     Indication: CONTRACEPTION
     Dosage: 1 D/F, DAILY (1/D)
     Dates: start: 20080812
  3. PULMICORT-100 [Concomitant]
     Indication: ASTHMA
     Dosage: 1 PUFF, 2/D
     Route: 055
     Dates: start: 19980812
  4. PARIET [Concomitant]
     Indication: GASTROOESOPHAGEAL REFLUX DISEASE
     Dosage: 20 MG, DAILY (1/D)
     Dates: start: 20050812

REACTIONS (1)
  - DERMATITIS [None]
